FAERS Safety Report 5842592-1 (Version None)
Quarter: 2008Q3

REPORT INFORMATION
  Report Type: 
  Country: None (occurrence: None)
  Receive Date: 20080812
  Receipt Date: 20080805
  Transmission Date: 20090109
  Serious: Yes (Other)
  Sender: FDA-Public Use
  Company Number: AU-MERCK-0808AUS00046

PATIENT
  Sex: Female

DRUGS (2)
  1. FOSAMAX [Concomitant]
     Route: 048
     Dates: start: 20000101
  2. FOSAMAX PLUS D [Suspect]
     Route: 048

REACTIONS (1)
  - BLADDER CANCER [None]
